FAERS Safety Report 9938825 (Version 1)
Quarter: 2014Q1

REPORT INFORMATION
  Report Type: Spontaneous
  Country: GB (occurrence: GB)
  Receive Date: 20140303
  Receipt Date: 20140303
  Transmission Date: 20141002
  Serious: Yes (Life-Threatening, Hospitalization)
  Sender: FDA-Public Use
  Company Number: GB-TEVA-464611ISR

PATIENT
  Age: 80 Year
  Sex: Female

DRUGS (13)
  1. TRIMETHOPRIM [Suspect]
     Indication: URINARY TRACT INFECTION
     Dosage: 400 MILLIGRAM DAILY;
     Route: 048
     Dates: start: 20140124, end: 20140126
  2. ADCAL-D3 [Concomitant]
  3. BISOPROLOL [Concomitant]
  4. BUDESONIDE [Concomitant]
  5. CODEINE [Concomitant]
  6. FOLIC ACID [Concomitant]
  7. MIRTAZAPINE [Concomitant]
  8. PARACETAMOL [Concomitant]
  9. PREDNISOLONE [Concomitant]
  10. RAMIPRIL [Concomitant]
  11. SALBUTAMOL [Concomitant]
  12. SIMVASTATIN [Concomitant]
  13. TRAMADOL [Concomitant]

REACTIONS (3)
  - Haematemesis [Recovered/Resolved]
  - Malaise [Unknown]
  - Gastritis [Unknown]
